FAERS Safety Report 21959266 (Version 1)
Quarter: 2023Q1

REPORT INFORMATION
  Report Type: Spontaneous
  Country: US (occurrence: US)
  Receive Date: 20230206
  Receipt Date: 20230206
  Transmission Date: 20230417
  Serious: Yes (Hospitalization)
  Sender: FDA-Public Use
  Company Number: US-ORGANON-O2301USA002823

PATIENT
  Age: 26 Year
  Sex: Female
  Weight: 64.399 kg

DRUGS (2)
  1. NEXPLANON [Suspect]
     Active Substance: ETONOGESTREL
     Indication: Contraception
     Dosage: 1 IMPLANT (IN ARM) FOR 3 YEARS
     Route: 059
     Dates: start: 20180504
  2. NITROFURANTOIN [Concomitant]
     Active Substance: NITROFURANTOIN
     Dosage: UNK

REACTIONS (6)
  - Urinary tract infection [Unknown]
  - Polymenorrhoea [Unknown]
  - Intermenstrual bleeding [Unknown]
  - Heavy menstrual bleeding [Unknown]
  - Heavy menstrual bleeding [Unknown]
  - Incorrect product administration duration [Not Recovered/Not Resolved]

NARRATIVE: CASE EVENT DATE: 20210503
